FAERS Safety Report 12724893 (Version 1)
Quarter: 2016Q3

REPORT INFORMATION
  Report Type: Spontaneous
  Country: US (occurrence: US)
  Receive Date: 20160908
  Receipt Date: 20160908
  Transmission Date: 20161109
  Serious: No
  Sender: FDA-Public Use
  Company Number: US-GLAXOSMITHKLINE-US2016128881

PATIENT
  Age: 26 Year
  Sex: Female

DRUGS (2)
  1. FLONASE [Suspect]
     Active Substance: FLUTICASONE PROPIONATE
     Indication: HYPERSENSITIVITY
     Dosage: UNK
     Dates: start: 20160815, end: 20160827
  2. FLONASE [Suspect]
     Active Substance: FLUTICASONE PROPIONATE
     Indication: NASAL CONGESTION

REACTIONS (2)
  - Drug ineffective [Not Recovered/Not Resolved]
  - Expired product administered [Unknown]
